FAERS Safety Report 7364041-7 (Version None)
Quarter: 2011Q1

REPORT INFORMATION
  Report Type: 
  Country: None (occurrence: None)
  Receive Date: 20110321
  Receipt Date: 20110307
  Transmission Date: 20110831
  Serious: Yes (Hospitalization)
  Sender: FDA-Public Use
  Company Number: PHHY2011TR19294

PATIENT
  Age: 74 Year
  Sex: Female

DRUGS (1)
  1. DICLOFENAC POTASSIUM [Suspect]
     Route: 048

REACTIONS (11)
  - KOUNIS SYNDROME [None]
  - CHEST PAIN [None]
  - BLOOD PRESSURE DECREASED [None]
  - UPPER RESPIRATORY TRACT INFECTION [None]
  - CORONARY ARTERY DISEASE [None]
  - ARTERIOSPASM CORONARY [None]
  - ELECTROCARDIOGRAM ST SEGMENT ELEVATION [None]
  - ATRIOVENTRICULAR BLOCK COMPLETE [None]
  - ANAPHYLACTIC REACTION [None]
  - GENERALISED ERYTHEMA [None]
  - BLOOD IMMUNOGLOBULIN E INCREASED [None]
